FAERS Safety Report 9246875 (Version 2)
Quarter: 2013Q2

REPORT INFORMATION
  Report Type: Spontaneous
  Country: US (occurrence: US)
  Receive Date: 20130422
  Receipt Date: 20130506
  Transmission Date: 20140414
  Serious: Yes (Hospitalization, Congenital Anomaly)
  Sender: FDA-Public Use
  Company Number: US-GLAXOSMITHKLINE-A1020777A

PATIENT
  Age: 0 Year
  Sex: Male

DRUGS (6)
  1. PAXIL CR [Suspect]
     Indication: ANXIETY
     Dosage: 50MG IN THE MORNING
     Route: 064
     Dates: start: 20021205, end: 200405
  2. ZYPREXA [Concomitant]
     Indication: ANXIETY
     Dosage: 2.5MG AT NIGHT
     Route: 064
  3. PROZAC [Concomitant]
     Indication: DEPRESSION
     Dosage: 20MG IN THE MORNING
     Route: 064
     Dates: start: 200407
  4. LOVENOX [Concomitant]
     Route: 064
  5. BABY ASPIRIN [Concomitant]
     Route: 064
  6. PRENATAL VITAMINS [Concomitant]
     Route: 064

REACTIONS (2)
  - Craniosynostosis [Unknown]
  - Foetal exposure during pregnancy [Unknown]
